FAERS Safety Report 15918603 (Version 9)
Quarter: 2020Q3

REPORT INFORMATION
  Report Type: Report from Study
  Country: NL (occurrence: NL)
  Receive Date: 20190205
  Receipt Date: 20190830
  Transmission Date: 20201104
  Serious: Yes (Hospitalization)
  Sender: FDA-Public Use
  Company Number: NL-JNJFOC-20190140821

PATIENT
  Age: 73 Year
  Sex: Female
  Weight: 98 kg

DRUGS (2)
  1. DARATUMUMAB [Suspect]
     Active Substance: DARATUMUMAB
     Indication: PLASMA CELL MYELOMA
     Route: 058
     Dates: start: 20180913, end: 20190117
  2. DEXAMETHASONE. [Suspect]
     Active Substance: DEXAMETHASONE
     Indication: PLASMA CELL MYELOMA
     Route: 048
     Dates: start: 20180913

REACTIONS (1)
  - Septic arthritis staphylococcal [Recovered/Resolved]

NARRATIVE: CASE EVENT DATE: 20190123
